FAERS Safety Report 24251557 (Version 2)
Quarter: 2024Q4

REPORT INFORMATION
  Report Type: Report from Study
  Country: CA (occurrence: CA)
  Receive Date: 20240827
  Receipt Date: 20241205
  Transmission Date: 20250115
  Serious: Yes (Hospitalization)
  Sender: ABBVIE
  Company Number: CA-ABBVIE-5889188

PATIENT
  Age: 62 Year
  Sex: Male

DRUGS (1)
  1. RINVOQ [Suspect]
     Active Substance: UPADACITINIB
     Indication: Colitis ulcerative
     Dosage: LAST ADMIN DATE 2024
     Route: 048
     Dates: start: 20240704

REACTIONS (4)
  - Pneumothorax [Unknown]
  - Skin burning sensation [Unknown]
  - Dyspnoea [Unknown]
  - Acne [Unknown]

NARRATIVE: CASE EVENT DATE: 20240101
